FAERS Safety Report 8920012 (Version 1)
Quarter: 2012Q4

REPORT INFORMATION
  Report Type: Report from Study
  Country: GB (occurrence: GB)
  Receive Date: 20121121
  Receipt Date: 20121121
  Transmission Date: 20130627
  Serious: Yes (Hospitalization)
  Sender: FDA-Public Use
  Company Number: GB-SANOFI-AVENTIS-2012SA084283

PATIENT
  Age: 42 Year
  Sex: Female
  Weight: 95 kg

DRUGS (11)
  1. DOCETAXEL [Suspect]
     Indication: HER-2 POSITIVE BREAST CANCER
     Dosage: Form: vials
     Route: 042
     Dates: start: 20100805, end: 20101115
  2. TRASTUZUMAB [Suspect]
     Indication: HER-2 POSITIVE BREAST CANCER
     Dosage: Form: vials.
dose: 8mg/kg
     Route: 042
     Dates: start: 20100804, end: 20101115
  3. BEVACIZUMAB [Suspect]
     Indication: HER-2 POSITIVE BREAST CANCER
     Dosage: 15 mg/kg
     Route: 042
     Dates: start: 20100805, end: 20101115
  4. DEXAMETHASONE [Suspect]
     Indication: DRUG USE FOR UNKNOWN INDICATION
     Route: 065
     Dates: end: 20101106
  5. DICLOFENAC [Suspect]
     Indication: DRUG USE FOR UNKNOWN INDICATION
     Route: 065
  6. CARBOPLATIN [Suspect]
     Indication: HER-2 POSITIVE BREAST CANCER
     Dosage: Form: Vials
     Route: 042
     Dates: start: 20100805, end: 20101115
  7. METOCLOPRAMIDE [Concomitant]
     Dates: start: 20100805
  8. LOPERAMIDE [Concomitant]
     Dates: start: 20100811
  9. ONDANSETRON [Concomitant]
     Dates: start: 20100812
  10. RAMIPRIL [Concomitant]
     Dates: start: 20101102
  11. CO-CODAMOL [Concomitant]
     Dates: start: 20101025

REACTIONS (2)
  - Haematemesis [Recovered/Resolved]
  - Gastric ulcer [Recovered/Resolved]
